FAERS Safety Report 13306064 (Version 5)
Quarter: 2017Q2

REPORT INFORMATION
  Report Type: Report from Study
  Country: US (occurrence: US)
  Receive Date: 20170308
  Receipt Date: 20170602
  Transmission Date: 20170830
  Serious: Yes (Hospitalization)
  Sender: FDA-Public Use
  Company Number: US-PFIZER INC-2016531606

PATIENT
  Age: 84 Year
  Sex: Female

DRUGS (1)
  1. IBRANCE [Suspect]
     Active Substance: PALBOCICLIB
     Indication: BREAST CANCER
     Dosage: 75 MG, CYCLIC (75 MG DAILY, 3 WEEKS ON/1 WEEK OFF)
     Route: 048
     Dates: start: 20161021, end: 20170409

REACTIONS (7)
  - White blood cell count decreased [Recovered/Resolved]
  - Viral infection [Not Recovered/Not Resolved]
  - Fatigue [Recovering/Resolving]
  - Blood potassium increased [Recovered/Resolved]
  - Red blood cell count decreased [Recovered/Resolved]
  - Pericardial effusion [Unknown]
  - Condition aggravated [Recovering/Resolving]
